FAERS Safety Report 6575762-8 (Version None)
Quarter: 2010Q1

REPORT INFORMATION
  Report Type: 
  Country: None (occurrence: None)
  Receive Date: 20100209
  Receipt Date: 20100208
  Transmission Date: 20100710
  Serious: Yes (Hospitalization)
  Sender: FDA-Public Use
  Company Number: US-EISAI INC.-E2080-00271-SPO-US

PATIENT
  Age: 32 Year
  Sex: Male

DRUGS (1)
  1. BANZEL [Suspect]
     Indication: LENNOX-GASTAUT SYNDROME
     Route: 048
     Dates: start: 20090801

REACTIONS (3)
  - PANCREATITIS [None]
  - PNEUMONIA [None]
  - URINARY TRACT INFECTION [None]
